FAERS Safety Report 7100127-X (Version None)
Quarter: 2010Q4

REPORT INFORMATION
  Report Type: 
  Country: None (occurrence: None)
  Receive Date: 20101112
  Receipt Date: 20100405
  Transmission Date: 20110411
  Serious: No
  Sender: FDA-Public Use
  Company Number: A0851816A

PATIENT
  Age: 39 Year
  Sex: Female

DRUGS (6)
  1. CARVEDILOL [Suspect]
     Indication: LEFT VENTRICULAR DYSFUNCTION
     Dosage: 6.25MG TWICE PER DAY
     Route: 048
     Dates: start: 20080101
  2. COREG CR [Suspect]
     Dosage: 20MG PER DAY
     Route: 048
     Dates: start: 20090301, end: 20091101
  3. LISINOPRIL [Concomitant]
  4. ASPIRIN [Concomitant]
  5. ALDACTONE [Concomitant]
  6. MULTI-VITAMIN [Concomitant]

REACTIONS (1)
  - MUSCLE TWITCHING [None]
